FAERS Safety Report 8833590 (Version 4)
Quarter: 2014Q2

REPORT INFORMATION
  Report Type: Spontaneous
  Country: US (occurrence: US)
  Receive Date: 20121010
  Receipt Date: 20130810
  Transmission Date: 20141212
  Serious: Yes (Hospitalization, Other)
  Sender: FDA-Public Use
  Company Number: US-BAXTER-2012BAX018949

PATIENT
  Age: 56 Year
  Sex: Female

DRUGS (1)
  1. TISSEEL [Suspect]
     Indication: WOUND CLOSURE
     Route: 061
     Dates: start: 20120405, end: 20120405

REACTIONS (3)
  - Infection [Recovered/Resolved]
  - Drug effect prolonged [Recovered/Resolved]
  - Pain [Recovered/Resolved]
